FAERS Safety Report 7246929-0 (Version None)
Quarter: 2011Q1

REPORT INFORMATION
  Report Type: 
  Country: None (occurrence: None)
  Receive Date: 20110127
  Receipt Date: 20110119
  Transmission Date: 20110831
  Serious: Yes (Other)
  Sender: FDA-Public Use
  Company Number: SK-BAXTER-2011BH001575

PATIENT
  Sex: Female

DRUGS (4)
  1. BISULEPIN HYDROCHLORIDE [Concomitant]
     Route: 030
  2. GAMMAGARD LIQUID [Suspect]
     Indication: IDIOPATHIC THROMBOCYTOPENIC PURPURA
     Route: 065
     Dates: start: 20110113, end: 20110114
  3. CALCIUM [Concomitant]
     Route: 042
  4. GAMMAGARD LIQUID [Suspect]
     Route: 065
     Dates: start: 20110113, end: 20110114

REACTIONS (4)
  - BODY TEMPERATURE INCREASED [None]
  - NECK PAIN [None]
  - ARTHRALGIA [None]
  - HEADACHE [None]
